FAERS Safety Report 18721260 (Version 5)
Quarter: 2021Q2

REPORT INFORMATION
  Report Type: Report from Study
  Country: US (occurrence: US)
  Receive Date: 20210109
  Receipt Date: 20210629
  Transmission Date: 20210717
  Serious: Yes (Other)
  Sender: FDA-Public Use
  Company Number: NVSC2021US002085

PATIENT
  Age: 26 Year
  Sex: Female
  Weight: 83.5 kg

DRUGS (1)
  1. KESIMPTA [Suspect]
     Active Substance: OFATUMUMAB
     Indication: MULTIPLE SCLEROSIS
     Dosage: UNK
     Route: 065
     Dates: start: 202012

REACTIONS (14)
  - Multiple sclerosis relapse [Recovering/Resolving]
  - Dizziness [Recovering/Resolving]
  - Fatigue [Recovering/Resolving]
  - Injection site bruising [Unknown]
  - Balance disorder [Recovering/Resolving]
  - Disturbance in attention [Unknown]
  - Gait disturbance [Recovering/Resolving]
  - Insomnia [Recovering/Resolving]
  - Pain in extremity [Recovering/Resolving]
  - Depression [Unknown]
  - Injection site pain [Recovered/Resolved]
  - Aphasia [Recovering/Resolving]
  - Migraine [Recovering/Resolving]
  - Illness [Unknown]

NARRATIVE: CASE EVENT DATE: 20201229
